FAERS Safety Report 7397337-3 (Version None)
Quarter: 2011Q2

REPORT INFORMATION
  Report Type: 
  Country: None (occurrence: None)
  Receive Date: 20110406
  Receipt Date: 20110331
  Transmission Date: 20111010
  Serious: Yes (Other)
  Sender: FDA-Public Use
  Company Number: CN-PFIZER INC-2011071223

PATIENT
  Age: 50 Year
  Weight: 50 kg

DRUGS (2)
  1. ITRACONAZOLE [Concomitant]
     Dosage: UNK
     Dates: end: 20110329
  2. VFEND [Suspect]
     Dosage: 300MG EVERY 12 HRS
     Route: 042
     Dates: start: 20110329

REACTIONS (2)
  - GUILLAIN-BARRE SYNDROME [None]
  - VIITH NERVE PARALYSIS [None]
